FAERS Safety Report 12870268 (Version 2)
Quarter: 2016Q4

REPORT INFORMATION
  Report Type: Spontaneous
  Country: US (occurrence: US)
  Receive Date: 20161021
  Receipt Date: 20161128
  Transmission Date: 20170207
  Serious: No
  Sender: FDA-Public Use
  Company Number: US-GLAXOSMITHKLINE-US2016153010

PATIENT
  Age: 62 Year
  Sex: Female

DRUGS (3)
  1. VOLTAREN [Suspect]
     Active Substance: DICLOFENAC SODIUM
     Indication: ARTHRALGIA
  2. VOLTAREN [Suspect]
     Active Substance: DICLOFENAC SODIUM
     Indication: PAIN IN EXTREMITY
  3. VOLTAREN [Suspect]
     Active Substance: DICLOFENAC SODIUM
     Indication: NEURALGIA
     Dosage: UNK

REACTIONS (6)
  - Intentional product use issue [Unknown]
  - Wrong technique in product usage process [Unknown]
  - Incorrect dosage administered [Unknown]
  - Product quality issue [Unknown]
  - Peripheral swelling [Unknown]
  - Drug ineffective [Unknown]
